FAERS Safety Report 15053056 (Version 2)
Quarter: 2018Q3

REPORT INFORMATION
  Report Type: Spontaneous
  Country: US (occurrence: US)
  Receive Date: 20180622
  Receipt Date: 20180706
  Transmission Date: 20181010
  Serious: Yes (Hospitalization)
  Sender: FDA-Public Use
  Company Number: US-OTSUKA-2018_015926

PATIENT
  Age: 35 Year
  Sex: Female

DRUGS (7)
  1. ARIPIPRAZOLE. [Suspect]
     Active Substance: ARIPIPRAZOLE
     Indication: PRODUCT USED FOR UNKNOWN INDICATION
     Dosage: 10 MG, QD
     Route: 048
  2. PERPHENAZIN [Concomitant]
     Indication: PRODUCT USED FOR UNKNOWN INDICATION
     Dosage: UNK
     Route: 065
  3. LEVOTHYROXINE. [Concomitant]
     Active Substance: LEVOTHYROXINE
     Indication: THYROID DISORDER
     Dosage: UNK
     Route: 065
  4. LATUDA [Suspect]
     Active Substance: LURASIDONE HYDROCHLORIDE
     Indication: PRODUCT USED FOR UNKNOWN INDICATION
     Dosage: UNK
     Route: 065
  5. INVEGA [Suspect]
     Active Substance: PALIPERIDONE
     Indication: PRODUCT USED FOR UNKNOWN INDICATION
     Dosage: UNK
     Route: 065
  6. CABERGOLINE. [Concomitant]
     Active Substance: CABERGOLINE
     Indication: BLOOD PROLACTIN
     Dosage: UNK (SMALL DOSE/0.25/TUESDAYS AND THURSDAY)
     Route: 065
  7. ABILIFY MAINTENA [Suspect]
     Active Substance: ARIPIPRAZOLE
     Indication: SCHIZOAFFECTIVE DISORDER
     Dosage: UNK
     Route: 065
     Dates: start: 20180522

REACTIONS (6)
  - Hospitalisation [Unknown]
  - Mental disorder [Unknown]
  - Therapeutic response unexpected [Unknown]
  - Aggression [Unknown]
  - Product use in unapproved indication [Unknown]
  - Blood prolactin increased [Recovering/Resolving]

NARRATIVE: CASE EVENT DATE: 20180605
